FAERS Safety Report 8588692-7 (Version None)
Quarter: 2012Q3

REPORT INFORMATION
  Report Type: 
  Country: None (occurrence: None)
  Receive Date: 20120813
  Receipt Date: 20120809
  Transmission Date: 20120928
  Serious: Yes (Other)
  Sender: FDA-Public Use
  Company Number: PHFR2012GB004428

PATIENT
  Sex: Female

DRUGS (1)
  1. MYFORTIC [Suspect]

REACTIONS (4)
  - CEREBROVASCULAR ACCIDENT [None]
  - BRAIN INJURY [None]
  - MASTICATION DISORDER [None]
  - ORAL ADMINISTRATION COMPLICATION [None]
